FAERS Safety Report 12930556 (Version 2)
Quarter: 2017Q1

REPORT INFORMATION
  Report Type: Spontaneous
  Country: DE (occurrence: DE)
  Receive Date: 20161110
  Receipt Date: 20170314
  Transmission Date: 20170428
  Serious: Yes (Death, Life-Threatening, Hospitalization)
  Sender: FDA-Public Use
  Company Number: DE-JNJFOC-20161108056

PATIENT
  Age: 79 Year
  Sex: Male
  Weight: 85 kg

DRUGS (2)
  1. ITRACONAZOLE. [Suspect]
     Active Substance: ITRACONAZOLE
     Indication: ONYCHOMYCOSIS
     Dosage: TOTAL DOSE: 700 MG
     Route: 048
     Dates: start: 20160818, end: 20160824
  2. ITRACONAZOLE. [Suspect]
     Active Substance: ITRACONAZOLE
     Indication: ONYCHOMYCOSIS
     Route: 048
     Dates: start: 20160825

REACTIONS (4)
  - Gastrointestinal haemorrhage [Fatal]
  - Hepatic failure [Fatal]
  - Multiple organ dysfunction syndrome [Fatal]
  - Drug-induced liver injury [Fatal]

NARRATIVE: CASE EVENT DATE: 20161006
